FAERS Safety Report 9450129 (Version 1)
Quarter: 2013Q3

REPORT INFORMATION
  Report Type: Spontaneous
  Country: US (occurrence: US)
  Receive Date: 20130809
  Receipt Date: 20130809
  Transmission Date: 20140515
  Serious: No
  Sender: FDA-Public Use
  Company Number: US-009507513-1308USA002346

PATIENT
  Sex: Female

DRUGS (2)
  1. PEGINTRON [Suspect]
     Indication: HEPATITIS
     Dosage: DOSE FORM UNKNOWN
     Dates: start: 20130101, end: 20130701
  2. REBETOL [Suspect]
     Indication: HEPATITIS
     Dosage: UNKNOWN
     Route: 048
     Dates: start: 20130101, end: 20130701

REACTIONS (1)
  - Drug ineffective [Unknown]
